FAERS Safety Report 15637239 (Version 1)
Quarter: 2018Q4

REPORT INFORMATION
  Report Type: Other
  Country: US (occurrence: FR)
  Receive Date: 20181120
  Receipt Date: 20181120
  Transmission Date: 20190205
  Serious: Yes (Other)
  Sender: FDA-Public Use
  Company Number: FR-BRECKENRIDGE PHARMACEUTICAL, INC.-2059057

PATIENT
  Age: 67 Year
  Sex: Female

DRUGS (1)
  1. BENDAMUSTINE [Suspect]
     Active Substance: BENDAMUSTINE

REACTIONS (1)
  - Venoocclusive liver disease [Unknown]
